FAERS Safety Report 7458813-8 (Version None)
Quarter: 2011Q2

REPORT INFORMATION
  Report Type: 
  Country: None (occurrence: None)
  Receive Date: 20110504
  Receipt Date: 20110427
  Transmission Date: 20111010
  Serious: Yes (Hospitalization, Other)
  Sender: FDA-Public Use
  Company Number: NO-JNJFOC-20110412181

PATIENT
  Age: 23 Year
  Sex: Female

DRUGS (7)
  1. NASONEX [Concomitant]
  2. FERROMAX [Concomitant]
  3. SEROQUEL [Concomitant]
  4. ATARAX [Concomitant]
  5. TELFAST [Concomitant]
  6. ALOPAM [Concomitant]
  7. STELARA [Suspect]
     Indication: PSORIASIS
     Route: 058

REACTIONS (3)
  - URTICARIA [None]
  - RASH PUSTULAR [None]
  - DERMATITIS EXFOLIATIVE [None]
